FAERS Safety Report 22635982 (Version 1)
Quarter: 2023Q2

REPORT INFORMATION
  Report Type: Spontaneous
  Country: US (occurrence: None)
  Receive Date: 20230621
  Receipt Date: 20230621
  Transmission Date: 20230722
  Serious: No
  Sender: FDA-Public Use
  Company Number: None

PATIENT
  Age: 83 Year
  Weight: 104.78 kg

DRUGS (14)
  1. ABIRATERONE [Suspect]
     Active Substance: ABIRATERONE
     Indication: Prostate cancer
     Dosage: FREQUENCY : DAILY;?
     Route: 048
     Dates: start: 202301
  2. ADVAIR HFA [Concomitant]
     Active Substance: FLUTICASONE PROPIONATE\SALMETEROL XINAFOATE
  3. CARVEDILOL [Concomitant]
     Active Substance: CARVEDILOL
  4. CASODEX [Concomitant]
     Active Substance: BICALUTAMIDE
  5. COUMADIN [Concomitant]
     Active Substance: WARFARIN SODIUM
  6. ELIQUIS [Concomitant]
     Active Substance: APIXABAN
  7. FLUTICASONE [Concomitant]
     Active Substance: FLUTICASONE
  8. NORCO [Concomitant]
     Active Substance: ACETAMINOPHEN\HYDROCODONE BITARTRATE
  9. LISINOPRIL [Concomitant]
     Active Substance: LISINOPRIL
  10. LOVENOX [Concomitant]
     Active Substance: ENOXAPARIN SODIUM
  11. MONTELUKAST [Concomitant]
     Active Substance: MONTELUKAST SODIUM
  12. PREDNISONE [Concomitant]
     Active Substance: PREDNISONE
  13. WARFARIN [Concomitant]
     Active Substance: WARFARIN
  14. ZOLEDRONIC [Concomitant]
     Active Substance: ZOLEDRONIC ACID

REACTIONS (1)
  - Drug ineffective [None]
